FAERS Safety Report 5033187-0 (Version None)
Quarter: 2006Q2

REPORT INFORMATION
  Report Type: 
  Country: None (occurrence: None)
  Receive Date: 20060620
  Receipt Date: 20060613
  Transmission Date: 20061013
  Serious: Yes (Death, Life-Threatening)
  Sender: FDA-Public Use
  Company Number: 2006-141690-NL

PATIENT
  Age: 77 Year
  Sex: Male

DRUGS (5)
  1. DANAPAROID SODIUM [Suspect]
     Indication: DISSEMINATED INTRAVASCULAR COAGULATION
     Dosage: 1250 ANTI_XA INTRAVENOUS DRIP
     Route: 041
     Dates: start: 20060313, end: 20060318
  2. MEROPENEM [Concomitant]
  3. CIMETIDINE [Concomitant]
  4. EPOETIN BETA [Concomitant]
  5. HEPARIN [Concomitant]

REACTIONS (7)
  - ANAEMIA [None]
  - DISEASE PROGRESSION [None]
  - GASTROINTESTINAL HAEMORRHAGE [None]
  - GENERAL PHYSICAL HEALTH DETERIORATION [None]
  - HAEMORRHAGE SUBCUTANEOUS [None]
  - PLATELET COUNT DECREASED [None]
  - PROTHROMBIN TIME PROLONGED [None]
